FAERS Safety Report 5857016-8 (Version None)
Quarter: 2008Q3

REPORT INFORMATION
  Report Type: 
  Country: None (occurrence: None)
  Receive Date: 20080825
  Receipt Date: 20080818
  Transmission Date: 20090109
  Serious: No
  Sender: FDA-Public Use
  Company Number: US-BOEHRINGER INGELHEIM GMBH, GERMANY-2008-BP-10449BP

PATIENT
  Sex: Female

DRUGS (10)
  1. SPIRIVA [Suspect]
     Indication: ASTHMA
     Route: 055
     Dates: start: 20080621
  2. SPIRIVA [Suspect]
     Indication: DYSPNOEA
  3. LOPRESSOR [Concomitant]
     Indication: CARDIAC DISORDER
     Route: 048
  4. OSCAL [Concomitant]
     Indication: RESORPTION BONE INCREASED
     Route: 048
  5. LASIX [Concomitant]
     Indication: CARDIAC DISORDER
     Route: 048
  6. POTASSIUM CHLORIDE [Concomitant]
     Indication: ELECTROLYTE SUBSTITUTION THERAPY
     Route: 048
  7. IRON [Concomitant]
     Indication: MINERAL SUPPLEMENTATION
     Route: 048
  8. MULTIVITAMIN [Concomitant]
     Indication: VITAMIN SUPPLEMENTATION
     Route: 048
  9. COUMADIN [Concomitant]
     Indication: CORONARY ARTERY BYPASS
     Route: 048
  10. CARTIA XT [Concomitant]
     Indication: CARDIAC DISORDER
     Route: 048

REACTIONS (1)
  - VISION BLURRED [None]
